FAERS Safety Report 8481638-1 (Version None)
Quarter: 2012Q3

REPORT INFORMATION
  Report Type: 
  Country: None (occurrence: None)
  Receive Date: 20120702
  Receipt Date: 20120620
  Transmission Date: 20120928
  Serious: Yes (Hospitalization)
  Sender: FDA-Public Use
  Company Number: US-VERTEX PHARMACEUTICALS INC.-AE-2012-000683

PATIENT
  Sex: Male
  Weight: 69.008 kg

DRUGS (9)
  1. RIBASPHERE [Concomitant]
     Indication: HEPATITIS C
     Route: 048
     Dates: start: 20111206
  2. VALIUM [Concomitant]
     Indication: SLEEP DISORDER
  3. IBUPROFEN [Concomitant]
     Indication: PAIN
  4. LACTULOSE [Concomitant]
  5. PROVIGIL [Concomitant]
  6. BENADRYL [Concomitant]
  7. INCIVEK [Suspect]
     Indication: HEPATITIS C
     Dates: start: 20111206, end: 20120304
  8. PEGASYS [Concomitant]
     Indication: HEPATITIS C
     Dates: start: 20111206
  9. FLEXERIL [Concomitant]
     Indication: MYALGIA

REACTIONS (3)
  - BLOOD CALCIUM DECREASED [None]
  - HEADACHE [None]
  - PHOTOPHOBIA [None]
